FAERS Safety Report 13988220 (Version 2)
Quarter: 2022Q1

REPORT INFORMATION
  Report Type: Report from Study
  Country: US (occurrence: US)
  Receive Date: 20170919
  Receipt Date: 20220303
  Transmission Date: 20220424
  Serious: Yes (Hospitalization, Other)
  Sender: FDA-Public Use
  Company Number: US-TEVA-797139USA

PATIENT
  Age: 57 Year
  Sex: Female

DRUGS (4)
  1. AUSTEDO [Suspect]
     Active Substance: DEUTETRABENAZINE
     Indication: Huntington^s disease
     Dosage: 48 MILLIGRAM DAILY; 24 MG IN MORNING 24 MG IN EVENING
     Route: 065
     Dates: start: 20170525, end: 201708
  2. ABILIFY [Concomitant]
     Active Substance: ARIPIPRAZOLE
     Dosage: 7.5 MILLIGRAM DAILY; STARTED WHILE ON AUSTEDO
     Dates: start: 20170726
  3. FLUOXETINE [Concomitant]
     Active Substance: FLUOXETINE HYDROCHLORIDE
     Dosage: 20 MILLIGRAM DAILY;
  4. METHYLPHENIDATE [Concomitant]
     Active Substance: METHYLPHENIDATE
     Dosage: 80 MILLIGRAM DAILY; 40 MG EVERY AM, 20 MG AT NOON, AND 20 MG AT DINNER

REACTIONS (5)
  - Suicide attempt [Recovered/Resolved with Sequelae]
  - Suicidal ideation [Recovering/Resolving]
  - Homicidal ideation [Recovered/Resolved]
  - Intentional overdose [Unknown]
  - Mood swings [Recovering/Resolving]

NARRATIVE: CASE EVENT DATE: 20170101
